FAERS Safety Report 5826696-5 (Version None)
Quarter: 2008Q3

REPORT INFORMATION
  Report Type: 
  Country: None (occurrence: None)
  Receive Date: 20080730
  Receipt Date: 20080717
  Transmission Date: 20090109
  Serious: Yes (Disabling)
  Sender: FDA-Public Use
  Company Number: PHHY2008NL14375

PATIENT
  Sex: Male

DRUGS (1)
  1. VOLTAREN [Suspect]
     Indication: NEPHROLITHIASIS
     Dosage: 75 MG, UNK
     Dates: start: 20080508

REACTIONS (12)
  - BACK PAIN [None]
  - COORDINATION ABNORMAL [None]
  - DYSSTASIA [None]
  - LOWER LIMB DEFORMITY [None]
  - MOTOR DYSFUNCTION [None]
  - MUSCULOSKELETAL DISORDER [None]
  - NEURALGIA [None]
  - NEUROPATHY PERIPHERAL [None]
  - PAIN IN EXTREMITY [None]
  - SCIATIC NERVE INJURY [None]
  - WALKING AID USER [None]
  - WRONG TECHNIQUE IN DRUG USAGE PROCESS [None]
